FAERS Safety Report 4714174-6 (Version None)
Quarter: 2005Q3

REPORT INFORMATION
  Report Type: 
  Country: None (occurrence: None)
  Receive Date: 20050701
  Receipt Date: 20041111
  Transmission Date: 20060218
  Serious: Yes (Death)
  Sender: FDA-Public Use
  Company Number: 2004057220

PATIENT
  Age: 15 Year
  Sex: Male

DRUGS (1)
  1. ZOLOFT [Suspect]
     Indication: SOCIAL PHOBIA
     Dates: start: 20030901

REACTIONS (4)
  - AGITATION [None]
  - COMPLETED SUICIDE [None]
  - EMOTIONAL DISORDER [None]
  - SUICIDE ATTEMPT [None]
